FAERS Safety Report 5958531-9 (Version None)
Quarter: 2008Q4

REPORT INFORMATION
  Report Type: 
  Country: None (occurrence: None)
  Receive Date: 20081119
  Receipt Date: 20081113
  Transmission Date: 20090506
  Serious: Yes (Other)
  Sender: FDA-Public Use
  Company Number: PHHY2008BR00967

PATIENT
  Sex: Female

DRUGS (2)
  1. ACLASTA [Suspect]
     Indication: OSTEOPOROSIS
     Dosage: 1 APPLICATION
     Route: 042
     Dates: start: 20071212
  2. OSCAL [Concomitant]
     Indication: OSTEOPOROSIS
     Dosage: 500 MG, QD
     Route: 048

REACTIONS (7)
  - ABASIA [None]
  - DRUG INEFFECTIVE [None]
  - HEADACHE [None]
  - PAIN [None]
  - RETCHING [None]
  - SYNCOPE [None]
  - WEIGHT INCREASED [None]
